FAERS Safety Report 21436004 (Version 3)
Quarter: 2022Q4

REPORT INFORMATION
  Report Type: Spontaneous
  Country: US (occurrence: None)
  Receive Date: 20221010
  Receipt Date: 20221128
  Transmission Date: 20230113
  Serious: Yes (Hospitalization, Other)
  Sender: FDA-Public Use
  Company Number: 2022A338216

PATIENT
  Age: 76 Year
  Sex: Female
  Weight: 66.2 kg

DRUGS (9)
  1. BUDESONIDE\FORMOTEROL\GLYCOPYRRONIUM [Suspect]
     Active Substance: BUDESONIDE\FORMOTEROL\GLYCOPYRRONIUM
     Indication: Bronchial hyperreactivity
     Dosage: 160/ 9/ 4.8 UG, 2 PUFFS TWO TIMES A DAY
     Route: 055
     Dates: start: 2021
  2. BUDESONIDE\FORMOTEROL\GLYCOPYRRONIUM [Suspect]
     Active Substance: BUDESONIDE\FORMOTEROL\GLYCOPYRRONIUM
     Indication: Chronic obstructive pulmonary disease
     Dosage: 160/ 9/ 4.8 UG, 2 PUFFS TWO TIMES A DAY
     Route: 055
     Dates: start: 2021
  3. BUDESONIDE\FORMOTEROL\GLYCOPYRRONIUM [Suspect]
     Active Substance: BUDESONIDE\FORMOTEROL\GLYCOPYRRONIUM
     Indication: Asthma
     Dosage: 160/ 9/ 4.8 UG, 2 PUFFS TWO TIMES A DAY
     Route: 055
     Dates: start: 2021
  4. SYMBICORT [Suspect]
     Active Substance: BUDESONIDE\FORMOTEROL FUMARATE DIHYDRATE
     Indication: Bronchial hyperreactivity
     Dosage: 160/ 9 UG, 2 PUFFS TWO TIMES A DAY
     Route: 055
  5. SYMBICORT [Suspect]
     Active Substance: BUDESONIDE\FORMOTEROL FUMARATE DIHYDRATE
     Indication: Chronic obstructive pulmonary disease
     Dosage: 160/ 9 UG, 2 PUFFS TWO TIMES A DAY
     Route: 055
  6. SYMBICORT [Suspect]
     Active Substance: BUDESONIDE\FORMOTEROL FUMARATE DIHYDRATE
     Indication: Asthma
     Dosage: 160/ 9 UG, 2 PUFFS TWO TIMES A DAY
     Route: 055
  7. FASENRA [Suspect]
     Active Substance: BENRALIZUMAB
     Indication: Bronchial hyperreactivity
     Dosage: EVERY EIGHT WEEKS
     Route: 058
  8. FASENRA [Suspect]
     Active Substance: BENRALIZUMAB
     Indication: Chronic obstructive pulmonary disease
     Dosage: EVERY EIGHT WEEKS
     Route: 058
  9. FASENRA [Suspect]
     Active Substance: BENRALIZUMAB
     Indication: Asthma
     Dosage: EVERY EIGHT WEEKS
     Route: 058

REACTIONS (6)
  - Arterial occlusive disease [Unknown]
  - Alopecia [Unknown]
  - Oedema peripheral [Not Recovered/Not Resolved]
  - Blood pressure increased [Unknown]
  - Pruritus [Recovered/Resolved]
  - Wrong technique in product usage process [Unknown]

NARRATIVE: CASE EVENT DATE: 20210101
